FAERS Safety Report 6222362-5 (Version None)
Quarter: 2009Q2

REPORT INFORMATION
  Report Type: 
  Country: None (occurrence: None)
  Receive Date: 20090611
  Receipt Date: 20090521
  Transmission Date: 20091009
  Serious: Yes (Hospitalization)
  Sender: FDA-Public Use
  Company Number: ES-GENENTECH-284074

PATIENT
  Sex: Female

DRUGS (6)
  1. BEVACIZUMAB [Suspect]
     Indication: BREAST CANCER METASTATIC
     Dosage: 810 MG, Q3W
     Route: 042
     Dates: start: 20071220
  2. DOCETAXEL [Suspect]
     Indication: BREAST CANCER METASTATIC
     Dosage: UNK
     Route: 065
     Dates: start: 20071220
  3. HIDROSALURETIL [Concomitant]
     Indication: DRUG USE FOR UNKNOWN INDICATION
     Dosage: UNK
  4. PAROXETINE HCL [Concomitant]
     Indication: DRUG USE FOR UNKNOWN INDICATION
  5. DACORTIN [Concomitant]
     Dosage: UNK
  6. BOTULINUM TOXIN NOS [Concomitant]
     Indication: DRUG USE FOR UNKNOWN INDICATION
     Dosage: UNK

REACTIONS (4)
  - DIZZINESS [None]
  - FALL [None]
  - MOVEMENT DISORDER [None]
  - PAIN IN EXTREMITY [None]
